FAERS Safety Report 9720762 (Version 1)
Quarter: 2013Q4

REPORT INFORMATION
  Report Type: Spontaneous
  Country: US (occurrence: US)
  Receive Date: 20131129
  Receipt Date: 20131129
  Transmission Date: 20140711
  Serious: Yes (Other)
  Sender: FDA-Public Use
  Company Number: PHHY2013US137981

PATIENT
  Age: 57 Year
  Sex: Female

DRUGS (1)
  1. ZOLEDRONATE [Suspect]
     Indication: RENAL CANCER METASTATIC

REACTIONS (4)
  - Osteonecrosis of jaw [Recovering/Resolving]
  - Discomfort [Unknown]
  - Tooth disorder [Unknown]
  - Exposed bone in jaw [Unknown]
